FAERS Safety Report 7351223-3 (Version None)
Quarter: 2011Q1

REPORT INFORMATION
  Report Type: 
  Country: None (occurrence: None)
  Receive Date: 20110314
  Receipt Date: 20110304
  Transmission Date: 20110831
  Serious: Yes (Death, Hospitalization)
  Sender: FDA-Public Use
  Company Number: US-MILLENNIUM PHARMACEUTICALS, INC.-2011-00117

PATIENT
  Sex: Male
  Weight: 75.283 kg

DRUGS (1)
  1. VELCADE [Suspect]
     Indication: MULTIPLE MYELOMA
     Dosage: 2.4 MG, UNK
     Route: 040
     Dates: start: 20100929, end: 20100930

REACTIONS (12)
  - DECREASED APPETITE [None]
  - FATIGUE [None]
  - RENAL FAILURE [None]
  - COMPRESSION FRACTURE [None]
  - MULTIPLE MYELOMA [None]
  - BLOOD POTASSIUM DECREASED [None]
  - BLOOD PRESSURE DECREASED [None]
  - NEOPLASM MALIGNANT [None]
  - MOBILITY DECREASED [None]
  - PAIN [None]
  - ASTHENIA [None]
  - ANXIETY [None]
